FAERS Safety Report 11351852 (Version 1)
Quarter: 2015Q3

REPORT INFORMATION
  Report Type: Spontaneous
  Country: US (occurrence: US)
  Receive Date: 20150807
  Receipt Date: 20150807
  Transmission Date: 20151125
  Serious: No
  Sender: FDA-Public Use
  Company Number: US-JNJFOC-20150704318

PATIENT
  Age: 52 Year
  Sex: Female
  Weight: 81.65 kg

DRUGS (11)
  1. LISINOPRIL. [Concomitant]
     Active Substance: LISINOPRIL
     Indication: HYPERTENSION
     Dosage: FOR 2 YEARS
     Route: 065
  2. IBUPROFEN. [Concomitant]
     Active Substance: IBUPROFEN
     Indication: PAIN
     Dosage: AS NEEDED FOR 30 YEARS
     Route: 065
  3. FISH OIL [Concomitant]
     Active Substance: FISH OIL
     Indication: BLOOD CHOLESTEROL
     Dosage: 2 YEARS
     Route: 065
  4. WOMENS ROGAINE UNSCENTED [Suspect]
     Active Substance: MINOXIDIL
     Route: 061
  5. VITAMIN D [Concomitant]
     Active Substance: CHOLECALCIFEROL
     Indication: SLEEP DISORDER THERAPY
     Dosage: 1 YEAR
     Route: 065
  6. VITAMIN D [Concomitant]
     Active Substance: CHOLECALCIFEROL
     Indication: DEPRESSION
     Dosage: 1 YEAR
     Route: 065
  7. IBUPROFEN. [Concomitant]
     Active Substance: IBUPROFEN
     Indication: PAIN
     Dosage: AS NEEDED FOR 30 YEARS
     Route: 065
  8. XANAX [Concomitant]
     Active Substance: ALPRAZOLAM
     Indication: ANXIETY
     Dosage: AS NEEDED, 7 YEARS
     Route: 065
  9. WOMENS ROGAINE UNSCENTED [Suspect]
     Active Substance: MINOXIDIL
     Indication: ALOPECIA
     Dosage: HALF A CAPFUL
     Route: 061
  10. BABY ASPIRIN [Concomitant]
     Active Substance: ASPIRIN
     Indication: BLOOD DISORDER
     Dosage: 10 YEARS
     Route: 065
  11. IBUPROFEN. [Concomitant]
     Active Substance: IBUPROFEN
     Indication: HEADACHE
     Dosage: AS NEEDED FOR 30 YEARS
     Route: 065

REACTIONS (3)
  - Alopecia [Not Recovered/Not Resolved]
  - Pruritus [Unknown]
  - Erythema [Unknown]
